FAERS Safety Report 9128019 (Version 1)
Quarter: 2013Q1

REPORT INFORMATION
  Report Type: Spontaneous
  Country: US (occurrence: US)
  Receive Date: 20130228
  Receipt Date: 20130228
  Transmission Date: 20140127
  Serious: Yes (Other)
  Sender: FDA-Public Use
  Company Number: US-BAYER-2013-023641

PATIENT
  Age: 84 Year
  Sex: Female

DRUGS (1)
  1. CIPRO [Suspect]
     Indication: KIDNEY INFECTION
     Dosage: 500 MG, UNK
     Route: 048
     Dates: start: 20130104, end: 20130110

REACTIONS (8)
  - Hallucination [None]
  - Disorientation [None]
  - Confusional state [None]
  - Mental impairment [None]
  - Depression [None]
  - Decreased interest [None]
  - Aggression [None]
  - Anxiety [None]
